FAERS Safety Report 9191221 (Version 1)
Quarter: 2013Q1

REPORT INFORMATION
  Report Type: Spontaneous
  Country: US (occurrence: US)
  Receive Date: 20130326
  Receipt Date: 20130326
  Transmission Date: 20140127
  Serious: No
  Sender: FDA-Public Use
  Company Number: US-ASTRAZENECA-2013SE16470

PATIENT
  Sex: Female

DRUGS (1)
  1. ARIMIDEX [Suspect]
     Dosage: UNK
     Route: 048
     Dates: end: 20121031

REACTIONS (3)
  - Intraocular pressure increased [Unknown]
  - Blood cholesterol increased [Unknown]
  - Drug dose omission [Unknown]
